FAERS Safety Report 23626776 (Version 1)
Quarter: 2024Q1

REPORT INFORMATION
  Report Type: Spontaneous
  Country: FR (occurrence: FR)
  Receive Date: 20240313
  Receipt Date: 20240313
  Transmission Date: 20240410
  Serious: Yes (Hospitalization)
  Sender: FDA-Public Use
  Company Number: None

PATIENT
  Age: 61 Year
  Sex: Female
  Weight: 80 kg

DRUGS (2)
  1. ESCITALOPRAM OXALATE [Suspect]
     Active Substance: ESCITALOPRAM OXALATE
     Indication: Depression
     Route: 048
     Dates: start: 202301, end: 20240126
  2. PRAZEPAM [Suspect]
     Active Substance: PRAZEPAM
     Indication: Anxiety
     Route: 048
     Dates: start: 202312, end: 20240126

REACTIONS (1)
  - Hepatitis acute [Recovering/Resolving]

NARRATIVE: CASE EVENT DATE: 20240101
